FAERS Safety Report 11889069 (Version 2)
Quarter: 2016Q1

REPORT INFORMATION
  Report Type: Spontaneous
  Country: GB (occurrence: GB)
  Receive Date: 20160105
  Receipt Date: 20160209
  Transmission Date: 20160526
  Serious: Yes (Death, Other)
  Sender: FDA-Public Use
  Company Number: GB-TEVA-622192ACC

PATIENT
  Age: 79 Year
  Sex: Male
  Weight: 67 kg

DRUGS (5)
  1. WARFARIN [Suspect]
     Active Substance: WARFARIN
     Indication: EMBOLISM VENOUS
     Dosage: AS PER INR
     Route: 048
     Dates: start: 20020207, end: 20151120
  2. ALCOHOL. [Concomitant]
     Active Substance: ALCOHOL
  3. WARFARIN [Suspect]
     Active Substance: WARFARIN
     Indication: EMBOLISM VENOUS
     Dosage: 4.1 MILLIGRAM DAILY; AS PER INR. INCREASED FROM 3.9MG
     Route: 048
     Dates: start: 20151121, end: 20151122
  4. BENDROFLUMETHIAZIDE [Concomitant]
     Active Substance: BENDROFLUMETHIAZIDE
     Indication: HYPERTENSION
  5. SIMVASTATIN. [Concomitant]
     Active Substance: SIMVASTATIN
     Indication: HYPERCHOLESTEROLAEMIA
     Dosage: 40 MILLIGRAM DAILY;

REACTIONS (5)
  - Cerebral haemorrhage [Not Recovered/Not Resolved]
  - Balance disorder [Not Recovered/Not Resolved]
  - Haemorrhage intracranial [Fatal]
  - Loss of consciousness [Not Recovered/Not Resolved]
  - Subdural haemorrhage [Not Recovered/Not Resolved]

NARRATIVE: CASE EVENT DATE: 20151122
